FAERS Safety Report 26094277 (Version 1)
Quarter: 2025Q4

REPORT INFORMATION
  Report Type: Spontaneous
  Country: JP (occurrence: JP)
  Receive Date: 20251126
  Receipt Date: 20251126
  Transmission Date: 20260119
  Serious: Yes (Other)
  Sender: PFIZER
  Company Number: JP-GENMAB-2025-03492

PATIENT
  Age: 54 Year
  Sex: Female

DRUGS (1)
  1. TIVDAK [Suspect]
     Active Substance: TISOTUMAB VEDOTIN-TFTV
     Indication: Adenocarcinoma of the cervix
     Dosage: UP TO CYCLE 4
     Route: 042

REACTIONS (1)
  - Upper gastrointestinal haemorrhage [Unknown]
